FAERS Safety Report 11673572 (Version 2)
Quarter: 2015Q4

REPORT INFORMATION
  Report Type: Spontaneous
  Country: IT (occurrence: IT)
  Receive Date: 20151028
  Receipt Date: 20151202
  Transmission Date: 20160304
  Serious: Yes (Other)
  Sender: FDA-Public Use
  Company Number: IT-BIOGENIDEC-2015BI142277

PATIENT
  Age: 46 Year
  Sex: Male

DRUGS (3)
  1. 3, 4-AMINOPYRIDINE [Concomitant]
     Dates: start: 20150601
  2. TYSABRI [Suspect]
     Active Substance: NATALIZUMAB
     Indication: MULTIPLE SCLEROSIS
     Route: 048
  3. TYSABRI [Suspect]
     Active Substance: NATALIZUMAB
     Indication: MULTIPLE SCLEROSIS
     Route: 042
     Dates: start: 20130708, end: 20150817

REACTIONS (1)
  - Liposarcoma [Unknown]

NARRATIVE: CASE EVENT DATE: 20150915
